FAERS Safety Report 12119842 (Version 1)
Quarter: 2016Q1

REPORT INFORMATION
  Report Type: Other
  Country: GB (occurrence: GB)
  Receive Date: 20160226
  Receipt Date: 20160226
  Transmission Date: 20160526
  Serious: Yes (Hospitalization, Disabling)
  Sender: FDA-Public Use
  Company Number: GB-MYLANLABS-2016M1007037

PATIENT

DRUGS (21)
  1. MYLAN NAPROXEN 250 [Suspect]
     Active Substance: NAPROXEN
     Indication: OSTEOARTHRITIS
     Dosage: 250 MG, QD
     Route: 048
     Dates: start: 2011, end: 20160203
  2. ZINC [Suspect]
     Active Substance: ZINC\ZINC CHLORIDE
     Dosage: 1 DF, QD
     Route: 048
  3. MAGNESIUM [Suspect]
     Active Substance: MAGNESIUM
     Dosage: UNK
     Route: 048
  4. CRANBERRY                          /01512301/ [Suspect]
     Active Substance: CRANBERRY
     Dosage: UNK
     Route: 048
  5. VITAMIN C [Suspect]
     Active Substance: ASCORBIC ACID
     Dosage: UNK
     Route: 048
  6. COENZYME Q10 [Suspect]
     Active Substance: UBIDECARENONE
     Dosage: UNK
     Route: 048
  7. GARLIC EXTRACT [Suspect]
     Active Substance: GARLIC
     Dosage: UNK
     Route: 048
  8. TURMERIC                           /01079601/ [Suspect]
     Active Substance: TURMERIC
     Dosage: UNK
     Route: 048
  9. CELERY SEED [Suspect]
     Active Substance: CELERY SEED
     Dosage: 1 DF, QD
     Route: 048
  10. OMEGA-3 /06852001/ [Suspect]
     Active Substance: DOCONEXENT\ICOSAPENT
     Dosage: 1 DF, QD
     Route: 048
  11. POTASSIUM [Suspect]
     Active Substance: POTASSIUM
     Dosage: UNK
     Route: 048
  12. ACTIVATED CHARCOAL [Suspect]
     Active Substance: ACTIVATED CHARCOAL
     Dosage: UNK
     Route: 048
  13. QUININE [Suspect]
     Active Substance: QUININE
     Indication: MUSCLE SPASMS
     Dosage: 300 MG, QD
     Route: 048
     Dates: end: 20160203
  14. BUCKWHEAT. [Suspect]
     Active Substance: BUCKWHEAT
     Dosage: UNK
     Route: 048
  15. COD LIVER OIL [Suspect]
     Active Substance: COD LIVER OIL
     Dosage: 1 DF, QD
     Route: 048
  16. LECITHIN [Suspect]
     Active Substance: LECITHIN
     Dosage: UNK
     Route: 048
  17. OSTEOCARE [Suspect]
     Active Substance: CALCIUM\CHOLECALCIFEROL\MAGNESIUM\ZINC
     Dosage: 1 DF, QD
     Route: 048
  18. FOLIC ACID. [Suspect]
     Active Substance: FOLIC ACID
     Dosage: UNK
     Route: 048
  19. FLAXSEED [Suspect]
     Active Substance: FLAX SEED
     Dosage: UNK
     Route: 048
  20. STARFLOWER OIL /01354602/ [Suspect]
     Active Substance: HERBALS
     Dosage: UNK
     Route: 048
  21. KELP /00082201/ [Suspect]
     Active Substance: IODINE
     Dosage: UNK
     Route: 048

REACTIONS (2)
  - Left ventricular dysfunction [Recovering/Resolving]
  - Cardiac failure [Recovering/Resolving]

NARRATIVE: CASE EVENT DATE: 20160202
